FAERS Safety Report 7407515-2 (Version None)
Quarter: 2011Q2

REPORT INFORMATION
  Report Type: 
  Country: None (occurrence: None)
  Receive Date: 20110412
  Receipt Date: 20110401
  Transmission Date: 20111010
  Serious: Yes (Hospitalization)
  Sender: FDA-Public Use
  Company Number: US-BIOGENIDEC-2011BI012361

PATIENT
  Sex: Male

DRUGS (1)
  1. TYSABRI [Suspect]
     Indication: MULTIPLE SCLEROSIS
     Route: 042
     Dates: start: 20070731, end: 20090921

REACTIONS (3)
  - BRAIN NEOPLASM MALIGNANT [None]
  - LUNG NEOPLASM MALIGNANT [None]
  - MOBILITY DECREASED [None]
